FAERS Safety Report 8034495-1 (Version None)
Quarter: 2012Q1

REPORT INFORMATION
  Report Type: 
  Country: None (occurrence: None)
  Receive Date: 20120110
  Receipt Date: 20120105
  Transmission Date: 20120608
  Serious: Yes (Other)
  Sender: FDA-Public Use
  Company Number: US-PFIZER INC-2012004255

PATIENT
  Sex: Female
  Weight: 137.42 kg

DRUGS (12)
  1. XANAX [Suspect]
     Dosage: 0.25 MG, 4X/DAY
  2. TOPAMAX [Suspect]
     Dosage: UNK
  3. INDERAL [Concomitant]
     Indication: MIGRAINE
     Dosage: UNK
  4. EFFEXOR [Suspect]
     Dosage: UNK
  5. LYRICA [Suspect]
     Indication: NEUROPATHY PERIPHERAL
     Dosage: 300 MG, DAILY
  6. CYMBALTA [Suspect]
     Indication: DEPRESSION
     Dosage: 60 MG, 2X/DAY
     Dates: start: 20020101
  7. XANAX [Suspect]
     Indication: ANXIETY
     Dosage: 0.50 MG, AS NEEDED
     Dates: start: 20020101
  8. CELEBREX [Suspect]
     Indication: PAIN
     Dosage: UNK
  9. CYMBALTA [Suspect]
     Indication: FIBROMYALGIA
     Dosage: UNK
     Dates: end: 20111201
  10. LYRICA [Suspect]
     Indication: FIBROMYALGIA
     Dosage: UNK
     Dates: start: 20020101
  11. LYRICA [Suspect]
     Dosage: UNK
     Dates: end: 20120101
  12. XANAX [Suspect]
     Dosage: UNK

REACTIONS (3)
  - DIABETES MELLITUS [None]
  - DRUG INEFFECTIVE [None]
  - PANIC ATTACK [None]
